FAERS Safety Report 12845032 (Version 1)
Quarter: 2016Q4

REPORT INFORMATION
  Report Type: Report from Study
  Country: DE (occurrence: DE)
  Receive Date: 20161013
  Receipt Date: 20161013
  Transmission Date: 20170207
  Serious: Yes (Death)
  Sender: FDA-Public Use
  Company Number: DE-PFIZER INC-2016479161

PATIENT
  Age: 60 Year
  Sex: Male

DRUGS (4)
  1. HYDROXYCHLOROQUINE [Concomitant]
     Active Substance: HYDROXYCHLOROQUINE
  2. CHLOROQUINE. [Concomitant]
     Active Substance: CHLOROQUINE
  3. METHOTREXATE SODIUM. [Suspect]
     Active Substance: METHOTREXATE SODIUM
     Dosage: 20 MG, WEEKLY
     Dates: end: 201607
  4. ENBREL [Suspect]
     Active Substance: ETANERCEPT
     Indication: RHEUMATOID ARTHRITIS
     Dosage: 50 MG, WEEKLY
     Dates: end: 201607

REACTIONS (1)
  - Death [Fatal]

NARRATIVE: CASE EVENT DATE: 20160808
